FAERS Safety Report 13108717 (Version 1)
Quarter: 2017Q1

REPORT INFORMATION
  Report Type: Spontaneous
  Country: US (occurrence: US)
  Receive Date: 20170111
  Receipt Date: 20170111
  Transmission Date: 20170428
  Serious: No
  Sender: FDA-Public Use
  Company Number: None

PATIENT
  Age: 59 Year
  Sex: Female
  Weight: 63.9 kg

DRUGS (8)
  1. D [Concomitant]
  2. VITAMIN B COMPLEX [Concomitant]
     Active Substance: CYANOCOBALAMIN\DEXPANTHENOL\NIACINAMIDE\PYRIDOXINE HYDROCHLORIDE\RIBOFLAVIN 5^-PHOSPHATE SODIUM\THIAMINE HYDROCHLORIDE\VITAMIN B COMPLEX
  3. ZEMBRIN [Concomitant]
  4. VITAMINAS [Concomitant]
  5. FISH OIL [Concomitant]
     Active Substance: FISH OIL
  6. PROGESTERONE 200 MG [Suspect]
     Active Substance: PROGESTERONE
     Route: 048
     Dates: end: 20170111
  7. ATENOLOL. [Concomitant]
     Active Substance: ATENOLOL
  8. C [Concomitant]

REACTIONS (4)
  - Nausea [None]
  - Somnolence [None]
  - Dizziness [None]
  - Slow speech [None]

NARRATIVE: CASE EVENT DATE: 20170111
